FAERS Safety Report 21409299 (Version 1)
Quarter: 2022Q4

REPORT INFORMATION
  Report Type: Report from Study
  Country: FR (occurrence: FR)
  Receive Date: 20221004
  Receipt Date: 20221004
  Transmission Date: 20230113
  Serious: Yes (Death, Hospitalization, Other)
  Sender: FDA-Public Use
  Company Number: FR-GRUNENTHAL-2022-108027

PATIENT

DRUGS (2)
  1. TRAMADOL HYDROCHLORIDE [Suspect]
     Active Substance: TRAMADOL HYDROCHLORIDE
     Indication: Pain
     Dosage: UNK
     Route: 065
  2. ACETAMINOPHEN\TRAMADOL [Suspect]
     Active Substance: ACETAMINOPHEN\TRAMADOL
     Indication: Pain
     Dosage: UNK
     Route: 065

REACTIONS (19)
  - Drug use disorder [Fatal]
  - Drug dependence [Fatal]
  - Withdrawal syndrome [Unknown]
  - Drug abuse [Fatal]
  - Overdose [Unknown]
  - Seizure [Unknown]
  - Social problem [Unknown]
  - Toxicity to various agents [Unknown]
  - Suicidal ideation [Unknown]
  - Suicide attempt [Unknown]
  - Self-medication [Unknown]
  - Altered state of consciousness [Unknown]
  - Respiratory depression [Unknown]
  - Drug diversion [Unknown]
  - Prescription form tampering [Unknown]
  - Prescription drug used without a prescription [Unknown]
  - Completed suicide [Fatal]
  - Death [Fatal]
  - Incorrect route of product administration [Unknown]
